FAERS Safety Report 20123435 (Version 4)
Quarter: 2022Q1

REPORT INFORMATION
  Report Type: Spontaneous
  Country: DE (occurrence: DE)
  Receive Date: 20211129
  Receipt Date: 20220107
  Transmission Date: 20220423
  Serious: Yes (Hospitalization, Other)
  Sender: FDA-Public Use
  Company Number: DE-002147023-NVSC2020DE167375

PATIENT
  Age: 81 Year
  Sex: Male

DRUGS (28)
  1. RAMIPRIL [Suspect]
     Active Substance: RAMIPRIL
     Indication: Product used for unknown indication
     Dosage: 2.5 MILLIGRAM
     Route: 048
     Dates: start: 20200425, end: 202101
  2. RAMIPRIL [Suspect]
     Active Substance: RAMIPRIL
     Dosage: 1.25 MILLIGRAM, ONCE A DAY
     Route: 048
     Dates: start: 202101
  3. RUXOLITINIB [Suspect]
     Active Substance: RUXOLITINIB
     Indication: Polycythaemia vera
     Dosage: 40 MILLIGRAM, ONCE A DAY(20 MG, BID )
     Route: 048
     Dates: start: 20191209, end: 20200927
  4. RUXOLITINIB [Suspect]
     Active Substance: RUXOLITINIB
     Dosage: 20 MILLIGRAM, ONCE A DAY(10 MG, BID )
     Route: 048
     Dates: start: 20200928
  5. RUXOLITINIB [Suspect]
     Active Substance: RUXOLITINIB
     Dosage: 10 MILLIGRAM, ONCE A DAY
     Route: 048
     Dates: start: 20210119, end: 20210803
  6. XIPAMIDE [Suspect]
     Active Substance: XIPAMIDE
     Indication: Oedema peripheral
     Dosage: 10 MILLIGRAM, ONCE A DAY
     Route: 048
     Dates: start: 20201130, end: 202101
  7. XIPAMIDE [Suspect]
     Active Substance: XIPAMIDE
     Indication: Hypertension
     Dosage: 10 MILLIGRAM, ONCE A DAY
     Route: 048
     Dates: start: 202108
  8. TORSEMIDE [Suspect]
     Active Substance: TORSEMIDE
     Indication: Hypertension
     Dosage: 5 MILLIGRAM, ONCE A DAY
     Route: 048
     Dates: start: 20200425, end: 20200619
  9. TORSEMIDE [Suspect]
     Active Substance: TORSEMIDE
     Indication: Oedema peripheral
     Dosage: 5 MILLIGRAM, ONCE A DAY
     Route: 048
     Dates: start: 20200417
  10. TORSEMIDE [Suspect]
     Active Substance: TORSEMIDE
     Dosage: 20 MILLIGRAM
     Route: 048
     Dates: start: 20201202, end: 202101
  11. TORSEMIDE [Suspect]
     Active Substance: TORSEMIDE
     Dosage: 10 MILLIGRAM, ONCE A DAY
     Route: 048
     Dates: start: 202006, end: 20201201
  12. TORSEMIDE [Suspect]
     Active Substance: TORSEMIDE
     Dosage: 5 MILLIGRAM, ONCE A DAY
     Route: 048
     Dates: start: 202102, end: 202107
  13. TORSEMIDE [Suspect]
     Active Substance: TORSEMIDE
     Dosage: 15 MILLIGRAM, ONCE A DAY
     Route: 048
     Dates: start: 202012, end: 202101
  14. TORSEMIDE [Suspect]
     Active Substance: TORSEMIDE
     Dosage: 20 MILLIGRAM, ONCE A DAY
     Route: 048
     Dates: start: 202108
  15. TORSEMIDE [Suspect]
     Active Substance: TORSEMIDE
     Dosage: 40 MILLIGRAM, ONCE A DAY (20 MG, BID)
     Route: 048
     Dates: start: 20201202, end: 202012
  16. ALDACTONE [Concomitant]
     Active Substance: SPIRONOLACTONE
     Indication: Lymphoedema
     Dosage: 25 MILLIGRAM, ONCE A DAY(25 MG, QD )
     Route: 048
     Dates: start: 202107
  17. ALLOPURINOL [Concomitant]
     Active Substance: ALLOPURINOL
     Indication: Hyperuricaemia
     Dosage: 100 MILLIGRAM, ONCE A DAY
     Route: 048
     Dates: start: 202102, end: 202107
  18. ALLOPURINOL [Concomitant]
     Active Substance: ALLOPURINOL
     Dosage: 100 MILLIGRAM, ONCE A DAY
     Route: 048
     Dates: start: 202108
  19. CHOLECALCIFEROL [Concomitant]
     Active Substance: CHOLECALCIFEROL
     Indication: Prophylaxis
     Dosage: 1000 INTERNATIONAL UNIT, ONCE A DAY
     Route: 048
     Dates: start: 202102
  20. ELIQUIS [Concomitant]
     Active Substance: APIXABAN
     Indication: Atrial fibrillation
     Dosage: 10 MILLIGRAM, ONCE A DAY(5 MG, BID )
     Route: 048
     Dates: start: 202012
  21. PANTOPRAZOLE SODIUM [Concomitant]
     Active Substance: PANTOPRAZOLE SODIUM
     Indication: Upper gastrointestinal haemorrhage
     Dosage: 80  MILLIGRAM, ONCE A DAY(40 MG, BID )
     Route: 048
     Dates: start: 201901
  22. PANTOPRAZOLE SODIUM [Concomitant]
     Active Substance: PANTOPRAZOLE SODIUM
     Dosage: 40 MILLIGRAM, ONCE A DAY
     Route: 048
     Dates: start: 202102, end: 202107
  23. PANTOPRAZOLE SODIUM [Concomitant]
     Active Substance: PANTOPRAZOLE SODIUM
     Dosage: 80 MILLIGRAM, ONCE A DAY
     Route: 048
     Dates: start: 202107
  24. SILAPO [Concomitant]
     Indication: Anaemia
     Dosage: 10000 INTERNATIONAL UNIT(10000 IU, PRN )
     Route: 042
     Dates: start: 201907
  25. TORSEMIDE [Concomitant]
     Active Substance: TORSEMIDE
     Indication: Hypertension
     Dosage: 5 MILLIGRAM, ONCE A DAY(5 MG, QD )
     Route: 048
     Dates: start: 20200425, end: 20200619
  26. XARELTO [Concomitant]
     Active Substance: RIVAROXABAN
     Indication: Atrial fibrillation
     Dosage: 20 MILLIGRAM, ONCE A DAY
     Route: 048
     Dates: start: 20200417
  27. XARELTO [Concomitant]
     Active Substance: RIVAROXABAN
     Dosage: 20 MILLIGRAM, ONCE A DAY
     Route: 048
     Dates: start: 20200425, end: 202006
  28. ATORVASTATIN [Concomitant]
     Active Substance: ATORVASTATIN
     Indication: Acute myocardial infarction
     Dosage: 40 MILLIGRAM, ONCE A DAY
     Route: 065

REACTIONS (13)
  - Acute kidney injury [Recovered/Resolved]
  - Pneumonia [Recovered/Resolved]
  - Duodenal ulcer [Recovered/Resolved]
  - Ophthalmic herpes zoster [Recovered/Resolved]
  - Eye inflammation [Recovered/Resolved]
  - Anaemia [Not Recovered/Not Resolved]
  - Hypokalaemia [Recovered/Resolved]
  - Renal impairment [Recovered/Resolved]
  - Pyrexia [Recovered/Resolved]
  - Oedema peripheral [Not Recovered/Not Resolved]
  - Infection [Recovered/Resolved]
  - Hyperuricaemia [Recovering/Resolving]
  - Inappropriate schedule of product administration [Unknown]

NARRATIVE: CASE EVENT DATE: 20200128
